FAERS Safety Report 6355819-7 (Version None)
Quarter: 2009Q3

REPORT INFORMATION
  Report Type: 
  Country: None (occurrence: None)
  Receive Date: 20090915
  Receipt Date: 20070410
  Transmission Date: 20100115
  Serious: Yes (Hospitalization, Other)
  Sender: FDA-Public Use
  Company Number: US-ASTRAZENECA-2006UW09865

PATIENT
  Age: 16217 Day
  Sex: Male
  Weight: 81.6 kg

DRUGS (44)
  1. SEROQUEL [Suspect]
     Indication: SLEEP DISORDER
     Dosage: 100 MG - 600 MG
     Route: 048
     Dates: start: 20030123
  2. SEROQUEL [Suspect]
     Indication: SCHIZOPHRENIA
     Dosage: 100 MG - 600 MG
     Route: 048
     Dates: start: 20030123
  3. SEROQUEL [Suspect]
     Dosage: INDICATION SLEEP
     Route: 048
     Dates: start: 20030301
  4. SEROQUEL [Suspect]
     Dosage: INDICATION SLEEP
     Route: 048
     Dates: start: 20030301
  5. SEROQUEL [Suspect]
     Dosage: INDICATION SCHIZOPHRENIA, DOSAGE VARIED BETWEEN 200-350 MG
     Route: 048
     Dates: start: 20030326, end: 20030811
  6. SEROQUEL [Suspect]
     Dosage: INDICATION SCHIZOPHRENIA, DOSAGE VARIED BETWEEN 200-350 MG
     Route: 048
     Dates: start: 20030326, end: 20030811
  7. SEROQUEL [Suspect]
     Dosage: INDICATION SCHIZOPHRENIA
     Route: 048
     Dates: start: 20030327
  8. SEROQUEL [Suspect]
     Dosage: INDICATION SCHIZOPHRENIA
     Route: 048
     Dates: start: 20030327
  9. SEROQUEL [Suspect]
     Dosage: INDICATION SLEEP
     Route: 048
     Dates: start: 20030604
  10. SEROQUEL [Suspect]
     Dosage: INDICATION SLEEP
     Route: 048
     Dates: start: 20030604
  11. SEROQUEL [Suspect]
     Dosage: INDICATION SLEEP
     Route: 048
     Dates: start: 20030917
  12. SEROQUEL [Suspect]
     Dosage: INDICATION SLEEP
     Route: 048
     Dates: start: 20030917
  13. SEROQUEL [Suspect]
     Dosage: INDICATION SCHIZOPHRENIA
     Route: 048
     Dates: start: 20031215, end: 20041204
  14. SEROQUEL [Suspect]
     Dosage: INDICATION SCHIZOPHRENIA
     Route: 048
     Dates: start: 20031215, end: 20041204
  15. SEROQUEL [Suspect]
     Dosage: INDICATION SLEEP
     Route: 048
     Dates: start: 20040326
  16. SEROQUEL [Suspect]
     Dosage: INDICATION SLEEP
     Route: 048
     Dates: start: 20040326
  17. SEROQUEL [Suspect]
     Dosage: INDICATION SLEEP
     Route: 048
     Dates: start: 20040816
  18. SEROQUEL [Suspect]
     Dosage: INDICATION SLEEP
     Route: 048
     Dates: start: 20040816
  19. SEROQUEL [Suspect]
     Dosage: INDICATION SCHIZOPHRENIA
     Route: 048
     Dates: start: 20041205, end: 20050218
  20. SEROQUEL [Suspect]
     Dosage: INDICATION SCHIZOPHRENIA
     Route: 048
     Dates: start: 20041205, end: 20050218
  21. SEROQUEL [Suspect]
     Dosage: INDICATION SCHIZOPHRENIA
     Route: 048
     Dates: start: 20050224, end: 20050428
  22. SEROQUEL [Suspect]
     Dosage: INDICATION SCHIZOPHRENIA
     Route: 048
     Dates: start: 20050224, end: 20050428
  23. SEROQUEL [Suspect]
     Dosage: INDICATION SCHIZOPHRENIA
     Route: 048
     Dates: start: 20050601, end: 20060626
  24. SEROQUEL [Suspect]
     Dosage: INDICATION SCHIZOPHRENIA
     Route: 048
     Dates: start: 20050601, end: 20060626
  25. SEROQUEL [Suspect]
     Dosage: INDICATION SCHIZOPHRENIA
     Route: 048
     Dates: start: 20050630, end: 20051203
  26. SEROQUEL [Suspect]
     Dosage: INDICATION SCHIZOPHRENIA
     Route: 048
     Dates: start: 20050630, end: 20051203
  27. SEROQUEL [Suspect]
     Route: 048
     Dates: start: 20060101
  28. SEROQUEL [Suspect]
     Route: 048
     Dates: start: 20060101
  29. RISPERDAL [Concomitant]
     Indication: SCHIZOPHRENIA
     Dates: start: 20030604
  30. RISPERDAL [Concomitant]
     Dosage: STRENGTH- 2 MG, 3 MG, 5 MG  DOSE - 2 MG - 5 MG DAILY
     Route: 048
     Dates: start: 20040219
  31. THORAZINE [Concomitant]
  32. LOPID [Concomitant]
     Indication: HYPERLIPIDAEMIA
     Route: 048
     Dates: start: 20031006
  33. IBUPROFEN [Concomitant]
     Indication: CHEST PAIN
     Dosage: STRENGTH - 500 MG, 600 MG   DOSE - 600 MG - 2400 MG
     Route: 048
     Dates: start: 20041013
  34. ENALAPRIL MALEATE [Concomitant]
     Indication: HYPERTENSION
     Dates: start: 20041013
  35. PEPCID [Concomitant]
     Indication: PEPTIC ULCER
     Route: 048
     Dates: start: 20040219
  36. PROTONIX [Concomitant]
     Route: 048
     Dates: start: 20031006
  37. CAPTOPRIL [Concomitant]
     Indication: HYPERTENSION
     Route: 048
     Dates: start: 20040219
  38. METOPROLOL TARTRATE [Concomitant]
     Route: 048
     Dates: start: 20050726
  39. ZOLOFT [Concomitant]
     Dosage: STRENGTH - 100 MG, 150 MG  DOSE - 100 MG - 150 MG DAILY
     Route: 048
     Dates: start: 20050413
  40. PRILOSEC [Concomitant]
     Route: 048
     Dates: start: 20050301
  41. PREDNISONE [Concomitant]
     Indication: PULMONARY SARCOIDOSIS
     Dosage: STRENGTH 5 MG, 10 MG, 20 MG, 40 MG, 60 MG   DOSE 5 MG - 60 MG DAILY
     Route: 048
     Dates: start: 20041021
  42. FUROSEMIDE [Concomitant]
     Route: 048
     Dates: start: 20050407
  43. ASPIRIN [Concomitant]
     Route: 048
     Dates: start: 20031006
  44. SYNTHROID [Concomitant]
     Indication: HYPOTHYROIDISM
     Dosage: 0.25 MCG - 0.125 MG DAILY
     Route: 048
     Dates: start: 20030306

REACTIONS (18)
  - BLOOD CHOLESTEROL INCREASED [None]
  - BLOOD TRIGLYCERIDES INCREASED [None]
  - BRONCHITIS [None]
  - CARDIAC FAILURE CONGESTIVE [None]
  - CHEST PAIN [None]
  - DEPRESSION SUICIDAL [None]
  - DIABETES MELLITUS [None]
  - DIABETES MELLITUS INADEQUATE CONTROL [None]
  - HYPERGLYCAEMIA [None]
  - HYPERGLYCAEMIC HYPEROSMOLAR NONKETOTIC SYNDROME [None]
  - MENINGITIS [None]
  - MENTAL STATUS CHANGES [None]
  - NAUSEA [None]
  - OBESITY [None]
  - PANCREATITIS [None]
  - PNEUMONIA [None]
  - RESPIRATORY FAILURE [None]
  - VOMITING [None]
